FAERS Safety Report 25996283 (Version 1)
Quarter: 2025Q4

REPORT INFORMATION
  Report Type: Report from Study
  Country: US (occurrence: US)
  Receive Date: 20251104
  Receipt Date: 20251104
  Transmission Date: 20260117
  Serious: No
  Sender: MALLINCKRODT
  Company Number: US-MALLINCKRODT-MNK202506406

PATIENT
  Age: 68 Year
  Sex: Female
  Weight: 115 kg

DRUGS (3)
  1. CORTICOTROPIN [Suspect]
     Active Substance: CORTICOTROPIN
     Indication: Rheumatoid arthritis
     Dosage: 80 UNITS
     Route: 058
     Dates: start: 20251010
  2. PREDNISONE [Suspect]
     Active Substance: PREDNISONE
     Indication: Product used for unknown indication
     Dosage: UNKNOWN
  3. RINVOQ [Suspect]
     Active Substance: UPADACITINIB
     Indication: Product used for unknown indication

REACTIONS (8)
  - Pain [Not Recovered/Not Resolved]
  - Liver function test abnormal [Unknown]
  - Tachycardia [Unknown]
  - Skin atrophy [Unknown]
  - Headache [Unknown]
  - Weight increased [Unknown]
  - Injection site pain [Unknown]
  - Localised infection [Unknown]

NARRATIVE: CASE EVENT DATE: 20251001
